FAERS Safety Report 18397929 (Version 2)
Quarter: 2020Q4

REPORT INFORMATION
  Report Type: Spontaneous
  Country: CN (occurrence: CN)
  Receive Date: 20201019
  Receipt Date: 20201117
  Transmission Date: 20210114
  Serious: Yes (Hospitalization)
  Sender: FDA-Public Use
  Company Number: CN-STRIDES ARCOLAB LIMITED-2020SP012265

PATIENT
  Age: 24 Year
  Sex: Male
  Weight: 52.2 kg

DRUGS (12)
  1. TACROLIMUS. [Interacting]
     Active Substance: TACROLIMUS
     Dosage: UNK
     Route: 048
  2. MEROPENEM. [Concomitant]
     Active Substance: MEROPENEM
     Indication: PROPHYLAXIS
     Dosage: 1 GRAM, EVERY 8 HRS
     Route: 065
     Dates: start: 2018
  3. TACROLIMUS. [Interacting]
     Active Substance: TACROLIMUS
     Dosage: 0.5 MILLIGRAM, BID
     Route: 048
     Dates: start: 2018, end: 2018
  4. MYCOPHENOLATE MOFETIL. [Suspect]
     Active Substance: MYCOPHENOLATE MOFETIL
     Indication: RENAL TRANSPLANT
     Dosage: 1440 MILLIGRAM, PER DAY, ENTERIC COATED
     Route: 065
     Dates: start: 2018, end: 2018
  5. MYCOPHENOLATE MOFETIL. [Suspect]
     Active Substance: MYCOPHENOLATE MOFETIL
     Dosage: UNK (RE-INITIATED ON SMALL DOSES)
     Route: 065
     Dates: start: 2018
  6. MYCOPHENOLATE MOFETIL. [Suspect]
     Active Substance: MYCOPHENOLATE MOFETIL
     Dosage: UNK, DOSE REDUCED
     Route: 065
  7. TACROLIMUS. [Suspect]
     Active Substance: TACROLIMUS
     Indication: RENAL TRANSPLANT
     Dosage: 4 MILLIGRAM, PER DAY ON DAY 3
     Route: 048
     Dates: start: 2018, end: 2018
  8. BASILIXIMAB [Concomitant]
     Active Substance: BASILIXIMAB
     Indication: RENAL TRANSPLANT
     Dosage: 20 MILLIGRAM
     Route: 042
     Dates: start: 2018
  9. TIGECYCLINE. [Interacting]
     Active Substance: TIGECYCLINE
     Indication: PROPHYLAXIS
     Dosage: 200 MILLIGRAM, FIRST DOSE FOLLOWED BY 100 MG EVERY 12 HRS
     Route: 042
     Dates: start: 2018
  10. CASPOFUNGIN [Concomitant]
     Active Substance: CASPOFUNGIN
     Indication: PROPHYLAXIS
     Dosage: 50 MILLIGRAM, PER DAY
     Route: 065
     Dates: start: 2018
  11. METHYLPREDNISOLONE. [Suspect]
     Active Substance: METHYLPREDNISOLONE
     Indication: RENAL TRANSPLANT
     Dosage: UNK
     Route: 065
     Dates: start: 2018
  12. TIGECYCLINE. [Interacting]
     Active Substance: TIGECYCLINE
     Dosage: 100 MILLIGRAM, EVERY 12 HRS
     Route: 042
     Dates: start: 2018

REACTIONS (14)
  - Pancreatitis acute [Recovered/Resolved]
  - Flatulence [Recovered/Resolved]
  - Abdominal tenderness [Recovered/Resolved]
  - Pelvic fluid collection [Recovered/Resolved]
  - Ileus [Recovered/Resolved]
  - Diarrhoea [Recovered/Resolved]
  - Parvovirus B19 infection [Not Recovered/Not Resolved]
  - Drug interaction [Unknown]
  - Cytomegalovirus infection [Recovered/Resolved]
  - Ascites [Recovered/Resolved]
  - Vomiting [Recovered/Resolved]
  - Gastrointestinal sounds abnormal [Recovered/Resolved]
  - Nausea [Recovered/Resolved]
  - Abdominal pain [Recovered/Resolved]

NARRATIVE: CASE EVENT DATE: 2018
